FAERS Safety Report 12826239 (Version 1)
Quarter: 2016Q4

REPORT INFORMATION
  Report Type: Spontaneous
  Country: US (occurrence: US)
  Receive Date: 20161007
  Receipt Date: 20161007
  Transmission Date: 20170207
  Serious: No
  Sender: FDA-Public Use
  Company Number: US-WATSON-2016-00467

PATIENT
  Age: 52 Year
  Sex: Female

DRUGS (2)
  1. FENTANYL UNKNOWN STRENGTH (WATSON LABORATORIES) [Suspect]
     Active Substance: FENTANYL
     Indication: NECK PAIN
  2. FENTANYL UNKNOWN STRENGTH (WATSON LABORATORIES) [Suspect]
     Active Substance: FENTANYL
     Indication: BACK PAIN
     Dosage: 150 MCG, Q 48 HOURS
     Route: 062

REACTIONS (5)
  - Nausea [Not Recovered/Not Resolved]
  - Pain [Not Recovered/Not Resolved]
  - Restlessness [Not Recovered/Not Resolved]
  - Feeling of body temperature change [Not Recovered/Not Resolved]
  - Withdrawal syndrome [Not Recovered/Not Resolved]

NARRATIVE: CASE EVENT DATE: 20160108
